FAERS Safety Report 16791491 (Version 1)
Quarter: 2019Q3

REPORT INFORMATION
  Report Type: Spontaneous
  Country: US (occurrence: US)
  Receive Date: 20190910
  Receipt Date: 20190910
  Transmission Date: 20191005
  Serious: Yes (Hospitalization, Other)
  Sender: FDA-Public Use
  Company Number: US-TARO-2019TAR00618

PATIENT
  Sex: Female
  Weight: 64.4 kg

DRUGS (6)
  1. FLUOCINONIDE GEL USP 0.05% [Suspect]
     Active Substance: FLUOCINONIDE
     Indication: NONINFECTIVE GINGIVITIS
     Dosage: UNK, 3X/DAY SPARINGLY
     Route: 048
  2. FLUOCINONIDE OINTMENT USP 0.05% [Suspect]
     Active Substance: FLUOCINONIDE
     Indication: ORAL LICHEN PLANUS
  3. UNSPECIFIED VITAMINS [Concomitant]
     Active Substance: VITAMINS
  4. FLUOCINONIDE GEL USP 0.05% [Suspect]
     Active Substance: FLUOCINONIDE
     Indication: IMPAIRED HEALING
  5. FLUOCINONIDE OINTMENT USP 0.05% [Suspect]
     Active Substance: FLUOCINONIDE
     Indication: STOMATITIS
     Dosage: UNK, 3X/DAY
     Route: 061
     Dates: start: 20190809, end: 201908
  6. FLUOCINONIDE GEL USP 0.05% [Suspect]
     Active Substance: FLUOCINONIDE
     Indication: STOMATITIS
     Dosage: UNK, 3X/DAY SPARINGLY
     Route: 048

REACTIONS (6)
  - Osteoporosis [Unknown]
  - Product use issue [Unknown]
  - Drug ineffective for unapproved indication [Not Recovered/Not Resolved]
  - Blood pressure fluctuation [Recovered/Resolved]
  - Oral pain [Recovering/Resolving]
  - Loss of consciousness [Recovered/Resolved]

NARRATIVE: CASE EVENT DATE: 2016
